FAERS Safety Report 25964798 (Version 1)
Quarter: 2025Q4

REPORT INFORMATION
  Report Type: Report from Study
  Country: CA (occurrence: CA)
  Receive Date: 20251027
  Receipt Date: 20251027
  Transmission Date: 20260118
  Serious: Yes (Other)
  Sender: BAUSCH AND LOMB
  Company Number: CA-BAUSCH-BH-2025-019192

PATIENT
  Age: 38 Year
  Sex: Male

DRUGS (2)
  1. SILIQ [Suspect]
     Active Substance: BRODALUMAB
     Indication: Psoriasis
     Dosage: STRENGTH: 210MG/1.5ML, WEEKLY (WEEK 0-2)
     Route: 058
     Dates: start: 20210503, end: 202105
  2. SILIQ [Suspect]
     Active Substance: BRODALUMAB
     Dosage: STRENGTH: 210MG/1.5ML, Q2 WEEKS
     Route: 058
     Dates: start: 2021

REACTIONS (1)
  - Psoriatic arthropathy [Not Recovered/Not Resolved]
